FAERS Safety Report 6371639-1 (Version None)
Quarter: 2009Q3

REPORT INFORMATION
  Report Type: 
  Country: None (occurrence: None)
  Receive Date: 20090923
  Receipt Date: 20080410
  Transmission Date: 20100115
  Serious: Yes (Other)
  Sender: FDA-Public Use
  Company Number: US-ASTRAZENECA-2008UW01150

PATIENT
  Age: 17739 Day
  Sex: Female
  Weight: 138.3 kg

DRUGS (21)
  1. SEROQUEL [Suspect]
     Indication: ANXIETY
     Route: 048
     Dates: start: 20050912
  2. SEROQUEL [Suspect]
     Indication: DEPRESSION
     Route: 048
     Dates: start: 20050912
  3. SEROQUEL [Suspect]
     Indication: BIPOLAR DISORDER
     Route: 048
     Dates: start: 20050912
  4. SEROQUEL [Suspect]
     Dosage: 50 MG TO 100 MG
     Route: 048
     Dates: start: 20060901
  5. SEROQUEL [Suspect]
     Dosage: 50 MG TO 100 MG
     Route: 048
     Dates: start: 20060901
  6. SEROQUEL [Suspect]
     Dosage: 50 MG TO 100 MG
     Route: 048
     Dates: start: 20060901
  7. TRAZODONE [Concomitant]
  8. CYMBALTA [Concomitant]
  9. GEODON [Concomitant]
  10. LEXAPRO [Concomitant]
  11. CUOMADIN [Concomitant]
  12. LISINOPRIL [Concomitant]
  13. ADVAIR HFA [Concomitant]
  14. ALBUTEROL [Concomitant]
  15. LORTAB [Concomitant]
  16. LIPITOR [Concomitant]
  17. LYRICA [Concomitant]
  18. METFORMIN HCL [Concomitant]
  19. GLIPIZIDE [Concomitant]
  20. RESTORIL [Concomitant]
  21. POTASSIUM CHLORIDE [Concomitant]

REACTIONS (2)
  - DIABETES MELLITUS INADEQUATE CONTROL [None]
  - DIABETIC KETOACIDOSIS [None]
